FAERS Safety Report 14718343 (Version 3)
Quarter: 2019Q2

REPORT INFORMATION
  Report Type: Spontaneous
  Country: US (occurrence: US)
  Receive Date: 20180404
  Receipt Date: 20190401
  Transmission Date: 20190711
  Serious: No
  Sender: FDA-Public Use
  Company Number: US-SA-2018SA087448

PATIENT
  Age: 76 Year
  Sex: Male

DRUGS (5)
  1. ALLOPURINOL. [Concomitant]
     Active Substance: ALLOPURINOL
     Indication: GOUT
     Dosage: UNK UNK,UNK
     Route: 065
     Dates: start: 198501
  2. DUPIXENT [Suspect]
     Active Substance: DUPILUMAB
     Indication: DERMATITIS ATOPIC
     Dosage: 300 MG,QOW
     Route: 058
     Dates: start: 20180205
  3. TAMSULOSIN [Concomitant]
     Active Substance: TAMSULOSIN
     Indication: POLLAKIURIA
     Dosage: UNK UNK,UNK
     Route: 065
     Dates: start: 201712
  4. DUPIXENT [Suspect]
     Active Substance: DUPILUMAB
     Indication: ECZEMA
  5. MELOXICAM. [Concomitant]
     Active Substance: MELOXICAM
     Indication: ARTHRITIS
     Dosage: UNK UNK,UNK
     Route: 065
     Dates: start: 201712

REACTIONS (7)
  - Injection site inflammation [Not Recovered/Not Resolved]
  - Injection site scab [Unknown]
  - Injection site erythema [Not Recovered/Not Resolved]
  - Pulmonary mass [Unknown]
  - Fall [Unknown]
  - Ulcer [Unknown]
  - Lip blister [Recovered/Resolved]

NARRATIVE: CASE EVENT DATE: 20180207
